FAERS Safety Report 18863813 (Version 1)
Quarter: 2021Q1

REPORT INFORMATION
  Report Type: Spontaneous
  Country: US (occurrence: US)
  Receive Date: 20210209
  Receipt Date: 20210209
  Transmission Date: 20210420
  Serious: Yes (Hospitalization, Other)
  Sender: FDA-Public Use
  Company Number: US-AUROBINDO-AUR-APL-2021-004940

PATIENT
  Age: 66 Year
  Sex: Male

DRUGS (1)
  1. METOPROLOL. [Suspect]
     Active Substance: METOPROLOL
     Indication: HYPERTENSION
     Dosage: UNK
     Route: 065

REACTIONS (14)
  - Mental status changes [Unknown]
  - Pneumoperitoneum [Unknown]
  - Swelling [Unknown]
  - Bacteraemia [Unknown]
  - Pneumatosis intestinalis [Unknown]
  - Dyspnoea [Unknown]
  - Blister [Recovered/Resolved]
  - Rash [Recovered/Resolved]
  - Acute kidney injury [Unknown]
  - Crying [Unknown]
  - Rash pruritic [Recovered/Resolved]
  - Pain [Unknown]
  - Pemphigus [Recovered/Resolved]
  - Staphylococcal infection [Unknown]
